FAERS Safety Report 6464433-4 (Version None)
Quarter: 2009Q4

REPORT INFORMATION
  Report Type: 
  Country: None (occurrence: None)
  Receive Date: 20091201
  Receipt Date: 20091118
  Transmission Date: 20100525
  Serious: Yes (Hospitalization)
  Sender: FDA-Public Use
  Company Number: FR-JNJFOC-20091107904

PATIENT
  Sex: Female

DRUGS (11)
  1. IXPRIM [Suspect]
     Indication: DRUG USE FOR UNKNOWN INDICATION
     Route: 048
  2. APROVEL [Suspect]
     Indication: DRUG USE FOR UNKNOWN INDICATION
     Route: 048
  3. ALLOPURINOL [Suspect]
     Indication: DRUG USE FOR UNKNOWN INDICATION
     Route: 048
  4. AMIODARONE HCL [Concomitant]
  5. OMEPRAZOLE [Concomitant]
  6. KARDEGIC [Concomitant]
  7. CARDENSIEL [Concomitant]
  8. ATARAX [Concomitant]
  9. NITRODERM [Concomitant]
  10. LASILIX [Concomitant]
  11. ZOLOFT [Concomitant]

REACTIONS (5)
  - BLOOD PHOSPHORUS INCREASED [None]
  - HYPOKALAEMIA [None]
  - MYOCARDIAL INFARCTION [None]
  - RENAL FAILURE ACUTE [None]
  - RHABDOMYOLYSIS [None]
